FAERS Safety Report 7818079-3 (Version None)
Quarter: 2011Q4

REPORT INFORMATION
  Report Type: 
  Country: None (occurrence: None)
  Receive Date: 20111017
  Receipt Date: 20111011
  Transmission Date: 20120403
  Serious: Yes (Other)
  Sender: FDA-Public Use
  Company Number: US-ABBOTT-11P-163-0863747-00

PATIENT
  Sex: Female
  Weight: 63.56 kg

DRUGS (1)
  1. PROMETRIUM [Suspect]
     Indication: ENDOMETRIAL HYPERTROPHY
     Dates: start: 20110915, end: 20110916

REACTIONS (13)
  - ANXIETY [None]
  - VISION BLURRED [None]
  - CEREBROVASCULAR ACCIDENT [None]
  - FEELING DRUNK [None]
  - MOVEMENT DISORDER [None]
  - STRESS [None]
  - TRANSIENT ISCHAEMIC ATTACK [None]
  - MEMORY IMPAIRMENT [None]
  - DYSARTHRIA [None]
  - TREMOR [None]
  - INSOMNIA [None]
  - GAIT DISTURBANCE [None]
  - CONFUSIONAL STATE [None]
